FAERS Safety Report 4695024-3 (Version None)
Quarter: 2005Q2

REPORT INFORMATION
  Report Type: 
  Country: None (occurrence: None)
  Receive Date: 20050614
  Receipt Date: 20050323
  Transmission Date: 20051028
  Serious: No
  Sender: FDA-Public Use
  Company Number: USA050290367

PATIENT
  Age: 9 Year
  Sex: Female

DRUGS (2)
  1. CIALIS [Suspect]
     Dosage: 20 MG/2 OTHER
     Dates: start: 20050209, end: 20050209
  2. ANTIBIOTIC [Concomitant]

REACTIONS (2)
  - ACCIDENTAL OVERDOSE [None]
  - MEDICATION ERROR [None]
